FAERS Safety Report 9967404 (Version 2)
Quarter: 2014Q1

REPORT INFORMATION
  Report Type: Report from Study
  Country: US (occurrence: US)
  Receive Date: 20140305
  Receipt Date: 20140305
  Transmission Date: 20141002
  Serious: Yes (Hospitalization)
  Sender: FDA-Public Use
  Company Number: US-ABBVIE-13P-163-1135209-00

PATIENT
  Age: 59 Year
  Sex: Female

DRUGS (18)
  1. HUMIRA [Suspect]
     Indication: CROHN^S DISEASE
     Route: 058
     Dates: start: 20110111, end: 201308
  2. HUMIRA [Suspect]
     Route: 058
     Dates: start: 20130818
  3. PROBIOTICS NOS [Concomitant]
     Indication: PRODUCT USED FOR UNKNOWN INDICATION
  4. FLECTOR [Concomitant]
     Indication: PRODUCT USED FOR UNKNOWN INDICATION
  5. FIORICET [Concomitant]
     Indication: PRODUCT USED FOR UNKNOWN INDICATION
  6. GLUCOPHAGE [Concomitant]
     Indication: PRODUCT USED FOR UNKNOWN INDICATION
  7. GLIPIZIDE [Concomitant]
     Indication: PRODUCT USED FOR UNKNOWN INDICATION
  8. VYTORIN [Concomitant]
     Indication: PRODUCT USED FOR UNKNOWN INDICATION
  9. LEXAPRO [Concomitant]
     Indication: PRODUCT USED FOR UNKNOWN INDICATION
  10. SOMA [Concomitant]
     Indication: PRODUCT USED FOR UNKNOWN INDICATION
  11. VALIUM [Concomitant]
     Indication: PRODUCT USED FOR UNKNOWN INDICATION
  12. CANASA [Concomitant]
     Indication: PRODUCT USED FOR UNKNOWN INDICATION
  13. FLEXERIL [Concomitant]
     Indication: PRODUCT USED FOR UNKNOWN INDICATION
  14. SYMAX [Concomitant]
     Indication: PRODUCT USED FOR UNKNOWN INDICATION
     Dosage: DUOTAB
  15. NEURONTIN [Concomitant]
     Indication: PRODUCT USED FOR UNKNOWN INDICATION
  16. ZANAFLEX [Concomitant]
     Indication: PRODUCT USED FOR UNKNOWN INDICATION
  17. LEVAQUIN [Concomitant]
     Indication: PRODUCT USED FOR UNKNOWN INDICATION
  18. VICODIN [Concomitant]
     Indication: PRODUCT USED FOR UNKNOWN INDICATION

REACTIONS (2)
  - Cellulitis [Unknown]
  - Abscess [Unknown]
